FAERS Safety Report 7241105-X (Version None)
Quarter: 2011Q1

REPORT INFORMATION
  Report Type: 
  Country: None (occurrence: None)
  Receive Date: 20110124
  Receipt Date: 20110117
  Transmission Date: 20110831
  Serious: Yes (Death, Life-Threatening, Hospitalization)
  Sender: FDA-Public Use
  Company Number: GB-CELGENEUS-167-21880-10120675

PATIENT
  Age: 72 Year
  Sex: Female

DRUGS (3)
  1. REVLIMID [Suspect]
     Route: 048
     Dates: start: 20101202
  2. CYCLOPHOSPHAMIDE [Suspect]
     Route: 048
     Dates: start: 20101202
  3. DEXAMETHASONE [Suspect]
     Route: 048
     Dates: start: 20101202

REACTIONS (3)
  - SEPSIS [None]
  - INTESTINAL PERFORATION [None]
  - DIVERTICULITIS [None]
